FAERS Safety Report 7945152-1 (Version None)
Quarter: 2011Q4

REPORT INFORMATION
  Report Type: 
  Country: None (occurrence: None)
  Receive Date: 20111121
  Receipt Date: 20111111
  Transmission Date: 20120403
  Serious: Yes (Other)
  Sender: FDA-Public Use
  Company Number: 2011SP053428

PATIENT
  Age: 42 Year
  Sex: Female

DRUGS (7)
  1. ABILIFY [Concomitant]
  2. PROLOSEC /00661201/ [Concomitant]
  3. PRAVASTATIN [Concomitant]
  4. ADDERALL 5 [Concomitant]
  5. SAPHRIS [Suspect]
     Indication: SCHIZOAFFECTIVE DISORDER BIPOLAR TYPE
     Dosage: 2.5 MG;HS;SL
     Route: 060
     Dates: end: 20111101
  6. ESTROGENS [Concomitant]
  7. LITHIUM [Concomitant]

REACTIONS (2)
  - URTICARIA [None]
  - ANGIOEDEMA [None]
